FAERS Safety Report 8959767 (Version 1)
Quarter: 2012Q4

REPORT INFORMATION
  Report Type: 
  Country: DE (occurrence: DE)
  Receive Date: 20121212
  Receipt Date: 20121212
  Transmission Date: 20130627
  Serious: No
  Sender: FDA-Public Use
  Company Number: PHHY2012DE113671

PATIENT
  Age: 45 Year
  Sex: Female

DRUGS (3)
  1. TASIGNA [Suspect]
     Indication: CHRONIC MYELOID LEUKAEMIA
     Dosage: 800 mg, daily
     Route: 048
     Dates: start: 20121125
  2. ASS [Concomitant]
  3. SIMVABETA [Concomitant]

REACTIONS (6)
  - Gastritis [Unknown]
  - Abdominal pain upper [Unknown]
  - Chills [Unknown]
  - Dry mouth [Unknown]
  - Eczema [Recovered/Resolved]
  - Weight decreased [Unknown]
